FAERS Safety Report 7743283-2 (Version None)
Quarter: 2011Q3

REPORT INFORMATION
  Report Type: 
  Country: None (occurrence: None)
  Receive Date: 20110909
  Receipt Date: 20110909
  Transmission Date: 20111222
  Serious: Yes (Other)
  Sender: FDA-Public Use
  Company Number: None

PATIENT
  Sex: Male
  Weight: 61 kg

DRUGS (2)
  1. RISPERIDONE [Suspect]
     Indication: AUTISM
     Dosage: 1 TID BID
  2. RISPERIDONE [Suspect]
     Indication: AUTISM
     Dosage: 1 TID BID

REACTIONS (3)
  - NO THERAPEUTIC RESPONSE [None]
  - AGGRESSION [None]
  - ABNORMAL BEHAVIOUR [None]
